FAERS Safety Report 4600422-X (Version None)
Quarter: 2005Q1

REPORT INFORMATION
  Report Type: 
  Country: None (occurrence: None)
  Receive Date: 20050307
  Receipt Date: 20050303
  Transmission Date: 20050727
  Serious: Yes (Other)
  Sender: FDA-Public Use
  Company Number: PHEH2005US02775

PATIENT

DRUGS (1)
  1. ELIDEL [Suspect]

REACTIONS (1)
  - LYMPHOMA [None]
